FAERS Safety Report 19772617 (Version 1)
Quarter: 2021Q3

REPORT INFORMATION
  Report Type: Spontaneous
  Country: US (occurrence: US)
  Receive Date: 20210830
  Receipt Date: 20210830
  Transmission Date: 20211014
  Serious: Yes (Hospitalization)
  Sender: FDA-Public Use
  Company Number: None

PATIENT
  Sex: Male

DRUGS (1)
  1. CAPECITABINE 500MG NOVADOZ PHARMACEUTICALS [Suspect]
     Active Substance: CAPECITABINE
     Indication: RECTAL CANCER
     Dosage: TAKE 4 TABLETS BY MOUTH IN THE MORNING AND 3 TABLETS IN THE EVENING FOR 14 DAYS ON, 7 DAYS OFF.
     Route: 048
     Dates: start: 202105

REACTIONS (2)
  - Haematemesis [None]
  - Illness [None]
